FAERS Safety Report 6539889-9 (Version None)
Quarter: 2010Q1

REPORT INFORMATION
  Report Type: 
  Country: None (occurrence: None)
  Receive Date: 20100113
  Receipt Date: 20090320
  Transmission Date: 20100710
  Serious: Yes (Other)
  Sender: FDA-Public Use
  Company Number: 2009187114

PATIENT
  Age: 37 Year
  Sex: Female
  Weight: 52.2 kg

DRUGS (1)
  1. FLUCONAZOLE [Suspect]
     Indication: FUNGAL INFECTION
     Dosage: 150 MG, SINGLE
     Dates: start: 20090319, end: 20090319

REACTIONS (1)
  - HYPERSENSITIVITY [None]
